FAERS Safety Report 5880235-1 (Version None)
Quarter: 2008Q3

REPORT INFORMATION
  Report Type: 
  Country: None (occurrence: None)
  Receive Date: 20080912
  Receipt Date: 20080902
  Transmission Date: 20090109
  Serious: Yes (Death, Other)
  Sender: FDA-Public Use
  Company Number: CN-PFIZER INC-2008074049

PATIENT
  Age: 87 Year
  Sex: Male

DRUGS (3)
  1. ZYVOX [Suspect]
     Indication: PNEUMONIA
     Route: 042
     Dates: start: 20080817, end: 20080827
  2. VFEND [Suspect]
     Indication: PNEUMONIA
     Route: 048
     Dates: start: 20080804, end: 20080903
  3. MEROPENEM [Concomitant]
     Route: 042
     Dates: start: 20080819, end: 20080903

REACTIONS (5)
  - DRUG INEFFECTIVE [None]
  - LEUKOPENIA [None]
  - RESPIRATORY FAILURE [None]
  - SHOCK [None]
  - THROMBOCYTOPENIA [None]
